FAERS Safety Report 12602822 (Version 1)
Quarter: 2016Q3

REPORT INFORMATION
  Report Type: Spontaneous
  Country: US (occurrence: US)
  Receive Date: 20160728
  Receipt Date: 20160728
  Transmission Date: 20161109
  Serious: No
  Sender: FDA-Public Use
  Company Number: PHEH2016US018550

PATIENT
  Sex: Female

DRUGS (2)
  1. VIVELLE-DOT [Suspect]
     Active Substance: ESTRADIOL
     Indication: PRODUCT USED FOR UNKNOWN INDICATION
     Dosage: 0.05 MG, QW (ONCE A WEEK)
     Route: 062
  2. VIVELLE-DOT [Suspect]
     Active Substance: ESTRADIOL
     Dosage: 0.05 MG, BIW
     Route: 062

REACTIONS (6)
  - Hot flush [Unknown]
  - Inappropriate schedule of drug administration [Unknown]
  - Quality of life decreased [Unknown]
  - Incorrect product storage [Unknown]
  - Depression [Unknown]
  - Crying [Unknown]
